FAERS Safety Report 25773528 (Version 1)
Quarter: 2025Q3

REPORT INFORMATION
  Report Type: Spontaneous
  Country: US (occurrence: US)
  Receive Date: 20250908
  Receipt Date: 20250908
  Transmission Date: 20251021
  Serious: Yes (Other)
  Sender: AMGEN
  Company Number: US-AMGEN-USASP2025175434

PATIENT
  Age: 21 Year
  Sex: Female

DRUGS (12)
  1. BLINATUMOMAB [Suspect]
     Active Substance: BLINATUMOMAB
     Indication: B precursor type acute leukaemia
     Route: 065
  2. BLINATUMOMAB [Suspect]
     Active Substance: BLINATUMOMAB
     Indication: Philadelphia chromosome negative
     Route: 065
  3. RITUXIMAB [Suspect]
     Active Substance: RITUXIMAB
     Indication: B precursor type acute leukaemia
     Route: 065
  4. RITUXIMAB [Suspect]
     Active Substance: RITUXIMAB
     Indication: Philadelphia chromosome negative
     Route: 065
  5. PREDNISONE [Concomitant]
     Active Substance: PREDNISONE
     Indication: B precursor type acute leukaemia
  6. PREDNISONE [Concomitant]
     Active Substance: PREDNISONE
     Indication: Philadelphia chromosome negative
  7. CYTARABINE [Concomitant]
     Active Substance: CYTARABINE
     Indication: B precursor type acute leukaemia
     Route: 029
  8. CYTARABINE [Concomitant]
     Active Substance: CYTARABINE
     Route: 029
  9. METHOTREXATE [Concomitant]
     Active Substance: METHOTREXATE
     Indication: B precursor type acute leukaemia
  10. METHOTREXATE [Concomitant]
     Active Substance: METHOTREXATE
  11. ONCOVIN [Concomitant]
     Active Substance: VINCRISTINE SULFATE
     Indication: B precursor type acute leukaemia
  12. PURINETHOL [Concomitant]
     Active Substance: MERCAPTOPURINE
     Indication: B precursor type acute leukaemia

REACTIONS (4)
  - Acute lymphocytic leukaemia recurrent [Unknown]
  - Complication associated with device [Unknown]
  - Drug effective for unapproved indication [Unknown]
  - Off label use [Unknown]
